FAERS Safety Report 7918370-6 (Version None)
Quarter: 2011Q4

REPORT INFORMATION
  Report Type: 
  Country: None (occurrence: None)
  Receive Date: 20111116
  Receipt Date: 20111108
  Transmission Date: 20120403
  Serious: No
  Sender: FDA-Public Use
  Company Number: US-ELI_LILLY_AND_COMPANY-US201110000347

PATIENT
  Sex: Female
  Weight: 61.224 kg

DRUGS (2)
  1. EFFIENT [Suspect]
     Indication: AORTIC VALVE REPLACEMENT
     Dosage: 10 MG, QD
     Dates: start: 20110615, end: 20110701
  2. ASPIRIN [Concomitant]
     Dosage: UNK, UNKNOWN
     Route: 065

REACTIONS (2)
  - FATIGUE [None]
  - OFF LABEL USE [None]
